FAERS Safety Report 15602420 (Version 1)
Quarter: 2018Q4

REPORT INFORMATION
  Report Type: Spontaneous
  Country: FR (occurrence: FR)
  Receive Date: 20181109
  Receipt Date: 20181109
  Transmission Date: 20190205
  Serious: Yes (Hospitalization)
  Sender: FDA-Public Use
  Company Number: FR-BAYER-2018-207955

PATIENT
  Age: 70 Year
  Sex: Male

DRUGS (6)
  1. CIFLOX [Suspect]
     Active Substance: CIPROFLOXACIN
     Indication: PROSTATITIS
     Dosage: UNK
     Route: 048
  2. BENDAMUSTINE HYDROCHLORIDE. [Suspect]
     Active Substance: BENDAMUSTINE HYDROCHLORIDE
     Indication: CHRONIC LYMPHOCYTIC LEUKAEMIA
     Dosage: 157.5 MG, UNK
     Route: 042
     Dates: start: 20180910, end: 20180911
  3. GRANOCYTE [Suspect]
     Active Substance: LENOGRASTIM
     Indication: CHEMOTHERAPY
     Dosage: 34 MIU, UNK
     Route: 058
     Dates: start: 20180914, end: 20180920
  4. BACTRIM-FORTE [Suspect]
     Active Substance: SULFAMETHOXAZOLE\TRIMETHOPRIM
     Indication: CHEMOTHERAPY
     Dosage: 3 DF, OW
     Route: 048
     Dates: start: 20180721, end: 20181020
  5. TAZOCILLINE [Suspect]
     Active Substance: PIPERACILLIN SODIUM\TAZOBACTAM SODIUM
     Indication: PROSTATITIS
     Dosage: 12 G, QD
     Route: 048
     Dates: start: 20181018, end: 20181019
  6. RITUXIMAB. [Suspect]
     Active Substance: RITUXIMAB
     Indication: CHRONIC LYMPHOCYTIC LEUKAEMIA
     Dosage: 880 MG, UNK
     Route: 042
     Dates: start: 20180910, end: 20180910

REACTIONS (2)
  - Neutropenia [Not Recovered/Not Resolved]
  - Thrombocytopenia [Recovering/Resolving]

NARRATIVE: CASE EVENT DATE: 20181018
